FAERS Safety Report 5749866-3 (Version None)
Quarter: 2008Q2

REPORT INFORMATION
  Report Type: 
  Country: None (occurrence: None)
  Receive Date: 20080527
  Receipt Date: 20080521
  Transmission Date: 20081010
  Serious: Yes (Other)
  Sender: FDA-Public Use
  Company Number: US-SANOFI-SYNTHELABO-A03200800639

PATIENT
  Sex: Male

DRUGS (3)
  1. AMBIEN [Suspect]
     Indication: INSOMNIA
     Dosage: TWO TO FOUR PILLS AT NIGHT
     Route: 048
     Dates: start: 20070501
  2. AMBIEN [Suspect]
     Indication: MALAISE
     Dosage: TWO TO FOUR PILLS AT NIGHT
     Route: 048
     Dates: start: 20070501
  3. AMBIEN [Suspect]
     Indication: KNEE OPERATION
     Dosage: TWO TO FOUR PILLS AT NIGHT
     Route: 048
     Dates: start: 20070501

REACTIONS (11)
  - ABNORMAL BEHAVIOUR [None]
  - ALCOHOL USE [None]
  - BALANCE DISORDER [None]
  - DISORIENTATION [None]
  - DYSARTHRIA [None]
  - DYSSTASIA [None]
  - GAIT DISTURBANCE [None]
  - IMPAIRED DRIVING ABILITY [None]
  - INTENTIONAL OVERDOSE [None]
  - ROAD TRAFFIC ACCIDENT [None]
  - SPEECH DISORDER [None]
